FAERS Safety Report 8008469-0 (Version None)
Quarter: 2011Q4

REPORT INFORMATION
  Report Type: 
  Country: None (occurrence: None)
  Receive Date: 20111227
  Receipt Date: 20111220
  Transmission Date: 20120403
  Serious: Yes (Hospitalization)
  Sender: FDA-Public Use
  Company Number: US-TEVA-314248USA

PATIENT
  Sex: Male

DRUGS (3)
  1. CLOZAPINE [Suspect]
     Dosage: 200 MILLIGRAM;
     Route: 048
  2. INSULIN GLARGINE [Concomitant]
     Indication: DIABETES MELLITUS
  3. PIOGLITAZONE [Concomitant]
     Indication: DIABETES MELLITUS

REACTIONS (1)
  - SKIN LESION [None]
